FAERS Safety Report 11887671 (Version 2)
Quarter: 2016Q1

REPORT INFORMATION
  Report Type: Report from Study
  Country: US (occurrence: US)
  Receive Date: 20160105
  Receipt Date: 20160115
  Transmission Date: 20160526
  Serious: Yes (Hospitalization, Other)
  Sender: FDA-Public Use
  Company Number: US-ASTRAZENECA-2015SF04772

PATIENT
  Age: 72 Year
  Sex: Female
  Weight: 44.5 kg

DRUGS (21)
  1. CALCIUM [Concomitant]
     Active Substance: CALCIUM
     Route: 041
  2. CRESTOR [Suspect]
     Active Substance: ROSUVASTATIN CALCIUM
     Indication: BLOOD CHOLESTEROL
     Route: 048
     Dates: start: 2003
  3. LEVOCETIRIZINE [Concomitant]
     Active Substance: LEVOCETIRIZINE
     Indication: HYPERSENSITIVITY
     Route: 048
  4. BISOPROLOL FUMARATE. [Concomitant]
     Active Substance: BISOPROLOL FUMARATE
     Indication: HEART RATE ABNORMAL
     Route: 048
  5. METOPROLOL. [Suspect]
     Active Substance: METOPROLOL
     Route: 065
  6. NEXIUM [Suspect]
     Active Substance: ESOMEPRAZOLE MAGNESIUM
     Indication: GASTROOESOPHAGEAL REFLUX DISEASE
     Route: 048
  7. NEXIUM [Suspect]
     Active Substance: ESOMEPRAZOLE MAGNESIUM
     Indication: GASTROOESOPHAGEAL REFLUX DISEASE
     Dosage: GENERIC 40 MG ORAL TWICE DAILY
     Route: 048
  8. NASONEX [Concomitant]
     Active Substance: MOMETASONE FUROATE
     Indication: SINUS DISORDER
     Dosage: TWO TIMES A DAY
     Route: 045
  9. HYDROCORTISONE. [Concomitant]
     Active Substance: HYDROCORTISONE
     Indication: ALOPECIA
     Dosage: TWO TIMES A DAY
     Route: 061
  10. XANAX [Concomitant]
     Active Substance: ALPRAZOLAM
     Indication: ANXIETY
     Route: 048
  11. CLINDAMYCIN [Concomitant]
     Active Substance: CLINDAMYCIN\CLINDAMYCIN PHOSPHATE
  12. NEXIUM [Suspect]
     Active Substance: ESOMEPRAZOLE MAGNESIUM
     Indication: GASTROOESOPHAGEAL REFLUX DISEASE
     Route: 048
     Dates: start: 201412
  13. ZETIA [Concomitant]
     Active Substance: EZETIMIBE
     Indication: BLOOD CHOLESTEROL
     Route: 048
  14. ZINC [Concomitant]
     Active Substance: ZINC\ZINC CHLORIDE
     Indication: IMMUNE SYSTEM DISORDER
     Route: 048
  15. CRESTOR [Suspect]
     Active Substance: ROSUVASTATIN CALCIUM
     Indication: BLOOD CHOLESTEROL
     Route: 048
     Dates: start: 2011
  16. MONTELUKAST [Concomitant]
     Active Substance: MONTELUKAST SODIUM
     Indication: DRUG HYPERSENSITIVITY
     Route: 048
     Dates: start: 201508
  17. ADVIL [Concomitant]
     Active Substance: IBUPROFEN
     Indication: PAIN
     Route: 048
  18. LOSARTAN. [Concomitant]
     Active Substance: LOSARTAN
     Indication: BLOOD PRESSURE FLUCTUATION
     Route: 048
  19. IPRATROPIUM BROMIDE. [Concomitant]
     Active Substance: IPRATROPIUM BROMIDE
     Indication: BRONCHIAL SECRETION RETENTION
     Dosage: 2 SPRAYS TO EACH NARE, TWO TIMES A DAY
     Route: 045
  20. CITRACAL [Concomitant]
     Active Substance: CALCIUM CITRATE
     Route: 048
     Dates: start: 201406
  21. ATROVENT [Concomitant]
     Active Substance: IPRATROPIUM BROMIDE
     Route: 007
     Dates: start: 2010

REACTIONS (31)
  - Alopecia [Unknown]
  - Nervousness [Unknown]
  - Weight decreased [Unknown]
  - Laryngeal oedema [Unknown]
  - Intestinal obstruction [Unknown]
  - Back pain [Unknown]
  - Multiple allergies [Unknown]
  - Cow^s milk intolerance [Unknown]
  - Post procedural haemorrhage [Unknown]
  - Hypertension [Unknown]
  - Aneurysm [Unknown]
  - Pneumonia [Unknown]
  - Dysuria [Unknown]
  - Sinusitis [Unknown]
  - Vomiting [Unknown]
  - Bronchitis [Unknown]
  - Oesophageal spasm [Unknown]
  - Feeding disorder [Unknown]
  - Pain [Unknown]
  - Drug hypersensitivity [Unknown]
  - Gastrooesophageal reflux disease [Unknown]
  - Spinal pain [Unknown]
  - Body height decreased [Unknown]
  - Product use issue [Unknown]
  - Hepatic enzyme increased [Unknown]
  - Adhesion [Unknown]
  - Malaise [Unknown]
  - Off label use [Unknown]
  - Vocal cord disorder [Unknown]
  - Dysphagia [Unknown]
  - Drug ineffective [Unknown]

NARRATIVE: CASE EVENT DATE: 2014
